FAERS Safety Report 6895846-4 (Version None)
Quarter: 2010Q3

REPORT INFORMATION
  Report Type: 
  Country: None (occurrence: None)
  Receive Date: 20100802
  Receipt Date: 20100722
  Transmission Date: 20110219
  Serious: Yes (Death)
  Sender: FDA-Public Use
  Company Number: BR-MEDIMMUNE-MEDI-0011448

PATIENT
  Sex: Female
  Weight: 6 kg

DRUGS (3)
  1. SYNAGIS [Suspect]
     Route: 030
     Dates: start: 20100613, end: 20100613
  2. SODIUM CHLORIDE 0.9% [Concomitant]
     Route: 045
  3. SODIUM CHLORIDE 0.9% [Concomitant]

REACTIONS (2)
  - CEREBRAL ISCHAEMIA [None]
  - PYREXIA [None]
